FAERS Safety Report 9157817 (Version 1)
Quarter: 2013Q1

REPORT INFORMATION
  Report Type: Spontaneous
  Country: JP (occurrence: None)
  Receive Date: 20130212
  Receipt Date: 20130212
  Transmission Date: 20140127
  Serious: Yes (Other)
  Sender: FDA-Public Use
  Company Number: 2012-003492

PATIENT
  Sex: Female
  Weight: 43.5 kg

DRUGS (1)
  1. ACTONEL (RISEDRONATE SODIUM) TABLET, 2.5MG [Suspect]
     Route: 048
     Dates: start: 200404, end: 2011

REACTIONS (5)
  - Femur fracture [None]
  - Bone pain [None]
  - Bone pain [None]
  - Stress fracture [None]
  - Low turnover osteopathy [None]
